FAERS Safety Report 7080723-9 (Version None)
Quarter: 2010Q4

REPORT INFORMATION
  Report Type: 
  Country: None (occurrence: None)
  Receive Date: 20101103
  Receipt Date: 20101025
  Transmission Date: 20110411
  Serious: Yes (Hospitalization)
  Sender: FDA-Public Use
  Company Number: KR-ASTRAZENECA-2010SE50615

PATIENT
  Sex: Female

DRUGS (7)
  1. CRESTOR [Suspect]
     Indication: HYPERLIPIDAEMIA
     Route: 048
     Dates: start: 20050516
  2. ASPIRIN [Concomitant]
     Dates: start: 20050228
  3. HERBEN [Concomitant]
     Dates: start: 20050228
  4. PLAVIX [Concomitant]
     Dates: start: 20050228
  5. MICARDIS [Concomitant]
     Dates: start: 20050228
  6. ISOSORBIDE DINITRATE [Concomitant]
     Dates: start: 20050228
  7. SELBEX [Concomitant]
     Dates: start: 19991210

REACTIONS (1)
  - HYPOAESTHESIA ORAL [None]
